FAERS Safety Report 16524922 (Version 5)
Quarter: 2020Q3

REPORT INFORMATION
  Report Type: Report from Study
  Country: FR (occurrence: FR)
  Receive Date: 20190702
  Receipt Date: 20200918
  Transmission Date: 20201102
  Serious: Yes (Other)
  Sender: FDA-Public Use
  Company Number: FR-GILEAD-2019-0400490

PATIENT
  Age: 41 Year
  Sex: Female

DRUGS (7)
  1. VP?16 [Concomitant]
     Active Substance: ETOPOSIDE
     Dosage: UNK
     Dates: start: 201903, end: 201903
  2. HOLOXAN [Concomitant]
     Active Substance: IFOSFAMIDE
     Dosage: UNK
     Dates: start: 201903, end: 201903
  3. FLUDARABINE [Concomitant]
     Active Substance: FLUDARABINE PHOSPHATE
     Indication: BONE MARROW CONDITIONING REGIMEN
     Dosage: 30 MG/KG/M2/DAY X3
     Dates: start: 201904
  4. TAZOCILLINE [Concomitant]
     Active Substance: PIPERACILLIN SODIUM\TAZOBACTAM SODIUM
     Dosage: UNK
     Dates: start: 20190409, end: 20190425
  5. AXICABTAGENE CILOLEUCEL [Suspect]
     Active Substance: AXICABTAGENE CILOLEUCEL
     Indication: DIFFUSE LARGE B-CELL LYMPHOMA
     Dosage: 2.27 ML/MIN, ONCE (THIRD LINE TREATMENT)
     Route: 042
     Dates: start: 20190417, end: 20190417
  6. CYCLOPHOSPHAMIDE. [Concomitant]
     Active Substance: CYCLOPHOSPHAMIDE
     Indication: BONE MARROW CONDITIONING REGIMEN
     Dosage: 500 MG/KG/M2/DAY X3
     Dates: start: 201904
  7. VANCOMYCINE [VANCOMYCIN] [Concomitant]
     Active Substance: VANCOMYCIN
     Dosage: UNK
     Dates: start: 20190423, end: 20190425

REACTIONS (4)
  - Hyperthermia [Recovered/Resolved]
  - Cytokine release syndrome [Unknown]
  - Rhinitis [Recovered/Resolved]
  - Coronavirus infection [Recovered/Resolved]

NARRATIVE: CASE EVENT DATE: 20190423
